FAERS Safety Report 7617480-0 (Version None)
Quarter: 2011Q3

REPORT INFORMATION
  Report Type: 
  Country: None (occurrence: None)
  Receive Date: 20110718
  Receipt Date: 20110714
  Transmission Date: 20111222
  Serious: No
  Sender: FDA-Public Use
  Company Number: US-PFIZER INC-2011160073

PATIENT
  Sex: Female
  Weight: 81.633 kg

DRUGS (2)
  1. CELEBREX [Suspect]
     Indication: BACK INJURY
     Dosage: 200 MG, 2X/DAY
     Route: 048
     Dates: start: 20040101, end: 20110713
  2. PROPRANOLOL HYDROCHLORIDE [Concomitant]
     Dosage: 80 MG, UNK

REACTIONS (4)
  - PRURITUS [None]
  - DRUG INEFFECTIVE [None]
  - BURNING SENSATION [None]
  - BACK INJURY [None]
